FAERS Safety Report 6695479-9 (Version None)
Quarter: 2010Q2

REPORT INFORMATION
  Report Type: 
  Country: None (occurrence: None)
  Receive Date: 20100425
  Receipt Date: 20100420
  Transmission Date: 20101027
  Serious: Yes (Hospitalization, Disabling)
  Sender: FDA-Public Use
  Company Number: FR-BRISTOL-MYERS SQUIBB COMPANY-14463806

PATIENT
  Age: 35 Year
  Sex: Male
  Weight: 80 kg

DRUGS (8)
  1. REYATAZ [Suspect]
     Indication: HIV INFECTION
     Dates: start: 20081216, end: 20090102
  2. TRUVADA [Suspect]
     Indication: HIV INFECTION
     Dosage: INTERRUPTED ON 2JAN09 RESTARTED ON 23JAN09
     Dates: start: 20081216
  3. NORVIR [Suspect]
     Indication: HIV INFECTION
     Dates: start: 20081216, end: 20090102
  4. MEDROL [Suspect]
     Dates: start: 20081210, end: 20081231
  5. IMOVANE [Suspect]
     Dates: start: 20081218, end: 20081231
  6. BACTRIM [Suspect]
     Indication: PNEUMOCYSTIS JIROVECI PNEUMONIA
     Dosage: INTERRUPTED ON 2JAN09 RESTARTED ON 23JAN09
     Dates: start: 20081206
  7. ATARAX [Concomitant]
     Dates: end: 20081224
  8. CORTICOSTEROID [Concomitant]
     Dates: end: 20081230

REACTIONS (4)
  - ARTHRALGIA [None]
  - DEMYELINATING POLYNEUROPATHY [None]
  - MYALGIA [None]
  - PYREXIA [None]
